FAERS Safety Report 8168041-9 (Version None)
Quarter: 2012Q1

REPORT INFORMATION
  Report Type: 
  Country: None (occurrence: None)
  Receive Date: 20120227
  Receipt Date: 20120217
  Transmission Date: 20120608
  Serious: Yes (Other)
  Sender: FDA-Public Use
  Company Number: PHHY2012BR015564

PATIENT
  Sex: Female

DRUGS (1)
  1. TEGRETOL-XR [Suspect]

REACTIONS (8)
  - TONGUE DISORDER [None]
  - HEADACHE [None]
  - CONFUSIONAL STATE [None]
  - ANGINA PECTORIS [None]
  - DYSGEUSIA [None]
  - BLOOD PRESSURE INCREASED [None]
  - MALAISE [None]
  - VISION BLURRED [None]
